FAERS Safety Report 8769289 (Version 3)
Quarter: 2013Q4

REPORT INFORMATION
  Report Type: Spontaneous
  Country: IT (occurrence: IT)
  Receive Date: 20120905
  Receipt Date: 20131031
  Transmission Date: 20140711
  Serious: Yes (Hospitalization)
  Sender: FDA-Public Use
  Company Number: IT-009507513-1208ITA011280

PATIENT
  Age: 87 Year
  Sex: Male

DRUGS (12)
  1. REMERON [Suspect]
     Dosage: 30 MG, QD
     Route: 048
     Dates: start: 20120727, end: 20120802
  2. ZOLOFT [Suspect]
     Dosage: 50 MG, QD
     Route: 048
     Dates: start: 20120727, end: 20120802
  3. ASPIRIN [Concomitant]
     Route: 048
  4. SODIUM BICARBONATE [Concomitant]
     Route: 048
  5. ALLOPURINOL [Concomitant]
     Route: 048
  6. IRON (UNSPECIFIED) [Concomitant]
     Route: 048
  7. ALMARYTM [Concomitant]
     Indication: ATRIAL FIBRILLATION
     Route: 048
  8. NORVASC [Concomitant]
     Route: 048
  9. LASIX (FUROSEMIDE SODIUM) [Concomitant]
     Dosage: 37.5 MG, QD
     Route: 048
  10. ROCALTROL [Concomitant]
     Route: 048
  11. FOLINA (FOLIC ACID) [Concomitant]
     Route: 048
  12. TACHIPIRINA [Concomitant]
     Route: 048

REACTIONS (8)
  - Torsade de pointes [Not Recovered/Not Resolved]
  - Tachypnoea [Unknown]
  - Hypokalaemia [Unknown]
  - Torsade de pointes [Unknown]
  - Torsade de pointes [Unknown]
  - Torsade de pointes [Unknown]
  - Dyspnoea [Unknown]
  - Ventricular tachycardia [Unknown]
